FAERS Safety Report 9693521 (Version 1)
Quarter: 2013Q4

REPORT INFORMATION
  Report Type: Spontaneous
  Country: US (occurrence: US)
  Receive Date: 20131118
  Receipt Date: 20131118
  Transmission Date: 20140711
  Serious: Yes (Other)
  Sender: FDA-Public Use
  Company Number: US-BAYER-2013-139774

PATIENT
  Age: 41 Year
  Sex: Female
  Weight: 107.3 kg

DRUGS (2)
  1. YASMIN [Suspect]
     Dosage: UNK
     Route: 048
     Dates: start: 200406
  2. AFEDITAB [Concomitant]
     Dosage: 30 MG, UNK
     Dates: start: 20040823

REACTIONS (1)
  - Deep vein thrombosis [Recovered/Resolved]
